FAERS Safety Report 10007102 (Version 2)
Quarter: 2014Q1

REPORT INFORMATION
  Report Type: Spontaneous
  Country: JP (occurrence: JP)
  Receive Date: 20140313
  Receipt Date: 20140319
  Transmission Date: 20141002
  Serious: Yes (Other)
  Sender: FDA-Public Use
  Company Number: JP-JNJFOC-20140306214

PATIENT
  Age: 72 Year
  Sex: Male

DRUGS (6)
  1. SIMPONI [Suspect]
     Indication: RHEUMATOID ARTHRITIS
     Route: 058
     Dates: start: 20120201, end: 20140205
  2. METOLATE [Suspect]
     Indication: PRODUCT USED FOR UNKNOWN INDICATION
     Route: 048
     Dates: start: 20100120, end: 20140215
  3. TRAMCET [Concomitant]
     Route: 048
  4. CELECOX [Concomitant]
     Route: 048
  5. PREDNISOLONE [Concomitant]
     Route: 048
  6. PRIMPERAN [Concomitant]
     Route: 048

REACTIONS (1)
  - Lymphoproliferative disorder [Not Recovered/Not Resolved]
